FAERS Safety Report 7707531-7 (Version None)
Quarter: 2011Q3

REPORT INFORMATION
  Report Type: 
  Country: None (occurrence: None)
  Receive Date: 20110824
  Receipt Date: 20110815
  Transmission Date: 20111222
  Serious: Yes (Death)
  Sender: FDA-Public Use
  Company Number: US-CELGENEUS-163-21880-10123417

PATIENT
  Sex: Male

DRUGS (11)
  1. CEPHALEXIN [Concomitant]
     Dosage: 250 MILLIGRAM
     Route: 065
  2. PROPRANOLOL [Concomitant]
     Dosage: 10 MILLIGRAM
     Route: 065
  3. REVLIMID [Suspect]
     Indication: MULTIPLE MYELOMA
     Dosage: 15 MILLIGRAM
     Route: 048
     Dates: start: 20091201
  4. DEXAMETHASONE [Concomitant]
     Dosage: 4 MILLIGRAM
     Route: 065
  5. LEXAPRO [Concomitant]
     Dosage: 10 MILLIGRAM
     Route: 065
  6. PROAIR HFA [Concomitant]
     Route: 055
  7. GABAPENTIN [Concomitant]
     Dosage: 100 MILLIGRAM
     Route: 065
  8. CLARITIN [Concomitant]
     Dosage: 10 MILLIGRAM
     Route: 065
  9. VITAMIN B6 [Concomitant]
     Dosage: 100 MILLIGRAM
     Route: 065
  10. PRILOSEC [Concomitant]
     Dosage: 40 MILLIGRAM
     Route: 065
  11. MUCINEX [Concomitant]
     Dosage: 1200 MILLIGRAM
     Route: 065

REACTIONS (4)
  - MULTIPLE MYELOMA [None]
  - GENERAL PHYSICAL HEALTH DETERIORATION [None]
  - BRONCHITIS [None]
  - GASTROINTESTINAL HAEMORRHAGE [None]
